FAERS Safety Report 19046374 (Version 5)
Quarter: 2024Q2

REPORT INFORMATION
  Report Type: Spontaneous
  Country: US (occurrence: US)
  Receive Date: 20210323
  Receipt Date: 20240422
  Transmission Date: 20240715
  Serious: Yes (Other)
  Sender: FDA-Public Use
  Company Number: US-PFIZER INC-2021229906

PATIENT
  Age: 67 Year
  Sex: Female

DRUGS (1)
  1. XELJANZ [Suspect]
     Active Substance: TOFACITINIB CITRATE
     Dosage: 5 MG
     Route: 048

REACTIONS (6)
  - Skin cancer [Unknown]
  - Muscle spasms [Unknown]
  - Hypertension [Unknown]
  - Herpes zoster [Unknown]
  - Disease recurrence [Unknown]
  - Immune system disorder [Unknown]

NARRATIVE: CASE EVENT DATE: 20221101
